FAERS Safety Report 17048054 (Version 6)
Quarter: 2023Q2

REPORT INFORMATION
  Report Type: Spontaneous
  Country: US (occurrence: US)
  Receive Date: 20191119
  Receipt Date: 20230412
  Transmission Date: 20230722
  Serious: No
  Sender: FDA-Public Use
  Company Number: US-PFIZER INC-2019494581

PATIENT
  Age: 69 Year
  Sex: Female

DRUGS (1)
  1. XELJANZ XR [Suspect]
     Active Substance: TOFACITINIB CITRATE
     Indication: Chest pain
     Dosage: 11 MG, DAILY
     Route: 048

REACTIONS (3)
  - Hypoacusis [Unknown]
  - Off label use [Unknown]
  - Drug effective for unapproved indication [Unknown]
